FAERS Safety Report 20332043 (Version 1)
Quarter: 2022Q1

REPORT INFORMATION
  Report Type: Spontaneous
  Country: US (occurrence: None)
  Receive Date: 20220113
  Receipt Date: 20220113
  Transmission Date: 20220424
  Serious: No
  Sender: FDA-Public Use
  Company Number: None

PATIENT
  Age: 69 Year
  Sex: Female

DRUGS (1)
  1. ORENCIA [Suspect]
     Active Substance: ABATACEPT
     Dosage: OTHER FREQUENCY : UNKNOWN;?
     Route: 058
     Dates: start: 20181118

REACTIONS (2)
  - Lip swelling [None]
  - Injection related reaction [None]

NARRATIVE: CASE EVENT DATE: 20211223
